FAERS Safety Report 8644655 (Version 2)
Quarter: 2012Q4

REPORT INFORMATION
  Report Type: 
  Country: US (occurrence: US)
  Receive Date: 20120701
  Receipt Date: 20120822
  Transmission Date: 20130627
  Serious: Yes (Other)
  Sender: FDA-Public Use
  Company Number: US-ELI_LILLY_AND_COMPANY-US201206007788

PATIENT
  Age: 35 None
  Sex: Male
  Weight: 99.32 kg

DRUGS (1)
  1. CYMBALTA [Suspect]
     Indication: ANXIETY
     Dosage: 30 mg, single
     Route: 048
     Dates: start: 20120705, end: 20120705

REACTIONS (4)
  - Syncope [Recovered/Resolved with Sequelae]
  - Disorientation [Recovered/Resolved]
  - Aggression [Recovered/Resolved]
  - Facial bones fracture [Unknown]
